FAERS Safety Report 7769284-6 (Version None)
Quarter: 2011Q3

REPORT INFORMATION
  Report Type: 
  Country: None (occurrence: None)
  Receive Date: 20110922
  Receipt Date: 20110906
  Transmission Date: 20111222
  Serious: Yes (Hospitalization)
  Sender: FDA-Public Use
  Company Number: BE-ROCHE-792371

PATIENT
  Sex: Female
  Weight: 67 kg

DRUGS (16)
  1. LEVOTHYROXINE SODIUM [Concomitant]
     Dates: start: 20081101
  2. TRASTUZUMAB [Suspect]
     Dosage: LAST DOSE PRIOR TO SAE: 31 AUGUST 2011
     Route: 042
     Dates: start: 20110720
  3. CAPECITABINE [Suspect]
     Dosage: LAST DOSE PRIOR TO SAE: 31 AUGUST 2011
     Route: 048
     Dates: start: 20110629
  4. TENORMIN [Concomitant]
     Dates: start: 20020101
  5. XANAX [Concomitant]
     Dates: start: 20090101
  6. MANIPREX [Concomitant]
     Dates: start: 20020101
  7. METFORMIN HCL [Concomitant]
  8. EFFEXOR [Concomitant]
     Dates: start: 20090101
  9. ACETAMINOPHEN [Concomitant]
     Dosage: FREQUENCY AS REQUIRED
     Dates: start: 20110629
  10. FRAXIPARINE [Concomitant]
     Dates: start: 20110726, end: 20110802
  11. LORAZEPAM [Concomitant]
     Dates: start: 20090101
  12. MOTILIUM [Concomitant]
     Dates: start: 20110708
  13. TRASTUZUMAB [Suspect]
     Dosage: LOADING DOSE, FORM: VIALS
     Route: 042
     Dates: start: 20110629
  14. PYRIDOXINE HCL [Concomitant]
     Dates: start: 20020101
  15. REMERGON [Concomitant]
     Dates: start: 20110720
  16. TEMAZEPAM [Concomitant]

REACTIONS (3)
  - URINARY TRACT INFECTION [None]
  - PYELOCALIECTASIS [None]
  - SEPSIS [None]
